FAERS Safety Report 8263468-9 (Version None)
Quarter: 2012Q2

REPORT INFORMATION
  Report Type: 
  Country: None (occurrence: None)
  Receive Date: 20120405
  Receipt Date: 20120330
  Transmission Date: 20120825
  Serious: Yes (Other)
  Sender: FDA-Public Use
  Company Number: US-GENZYME-CART-1000067

PATIENT

DRUGS (1)
  1. CARTICEL [Suspect]
     Indication: CARTILAGE INJURY
     Dosage: UNK
     Route: 014
     Dates: start: 20100219, end: 20100219

REACTIONS (1)
  - ARTHROPATHY [None]
